FAERS Safety Report 7103856-7 (Version None)
Quarter: 2010Q4

REPORT INFORMATION
  Report Type: 
  Country: None (occurrence: None)
  Receive Date: 20101115
  Receipt Date: 20101105
  Transmission Date: 20110411
  Serious: Yes (Hospitalization, Other)
  Sender: FDA-Public Use
  Company Number: US-MILLENNIUM PHARMACEUTICALS, INC.-2010-05159

PATIENT
  Sex: Female

DRUGS (3)
  1. VELCADE [Suspect]
     Indication: PANCREATIC CARCINOMA
     Dosage: 2.1 MG, CYCLIC
     Route: 042
     Dates: start: 20100924, end: 20101004
  2. PANOBINOSTAT [Suspect]
     Indication: PANCREATIC CARCINOMA
     Dosage: 20 MG, CYCLIC
     Route: 048
     Dates: start: 20100924, end: 20101005
  3. COUMADIN [Concomitant]
     Indication: DEEP VEIN THROMBOSIS
     Dosage: UNK
     Dates: start: 20100701

REACTIONS (10)
  - BACK PAIN [None]
  - FATIGUE [None]
  - GINGIVAL BLEEDING [None]
  - HAEMOGLOBIN DECREASED [None]
  - INADEQUATE ANALGESIA [None]
  - INTERNATIONAL NORMALISED RATIO INCREASED [None]
  - PLATELET COUNT DECREASED [None]
  - PROTHROMBIN TIME PROLONGED [None]
  - RETROPERITONEAL HAEMORRHAGE [None]
  - UPPER GASTROINTESTINAL HAEMORRHAGE [None]
